FAERS Safety Report 5162515-0 (Version None)
Quarter: 2006Q4

REPORT INFORMATION
  Report Type: 
  Country: None (occurrence: None)
  Receive Date: 20061121
  Receipt Date: 20061107
  Transmission Date: 20070319
  Serious: Yes (Hospitalization)
  Sender: FDA-Public Use
  Company Number: US-2006-018536

PATIENT
  Age: 51 Year
  Sex: Female

DRUGS (9)
  1. BETASERON [Suspect]
     Indication: RELAPSING-REMITTING MULTIPLE SCLEROSIS
     Dosage: 8 MIU, EVERY 2D, SUBCUTANEOUS
     Route: 058
     Dates: start: 19930801, end: 20060701
  2. BETASERON [Suspect]
     Indication: RELAPSING-REMITTING MULTIPLE SCLEROSIS
     Dosage: 8 MIU, EVERY 2D, SUBCUTANEOUS
     Route: 058
     Dates: start: 20060801
  3. LIPITOR [Concomitant]
  4. SYNTHROID [Concomitant]
  5. ENALAPRIL MALEATE [Concomitant]
  6. COUMADIN [Concomitant]
  7. ZOLOFT [Concomitant]
  8. ASPIRIN [Concomitant]
  9. SPIRIVA INHALER (TIOTROPIUM) [Concomitant]

REACTIONS (3)
  - CARDIAC FAILURE CONGESTIVE [None]
  - HEART VALVE REPLACEMENT [None]
  - INJECTION SITE ERYTHEMA [None]
